FAERS Safety Report 5971618-X (Version None)
Quarter: 2008Q4

REPORT INFORMATION
  Report Type: 
  Country: None (occurrence: None)
  Receive Date: 20081201
  Receipt Date: 20081126
  Transmission Date: 20090506
  Serious: Yes (Death)
  Sender: FDA-Public Use
  Company Number: JP-JNJFOC-20081103373

PATIENT
  Age: 73 Year
  Sex: Male

DRUGS (7)
  1. ITRIZOLE [Suspect]
     Route: 041
  2. ITRIZOLE [Suspect]
     Indication: BRONCHOPULMONARY ASPERGILLOSIS ALLERGIC
     Dosage: 2 DAYS
     Route: 041
  3. ITRIZOLE [Suspect]
     Route: 048
  4. PIRETAZOL [Suspect]
     Indication: DRUG USE FOR UNKNOWN INDICATION
     Route: 048
  5. CRAVIT [Concomitant]
     Route: 065
  6. PIPERACILLIN [Concomitant]
     Route: 041
  7. PAZUCROSS [Concomitant]
     Route: 065

REACTIONS (2)
  - LUNG DISORDER [None]
  - MULTI-ORGAN FAILURE [None]
